FAERS Safety Report 8133355-5 (Version None)
Quarter: 2012Q1

REPORT INFORMATION
  Report Type: 
  Country: None (occurrence: None)
  Receive Date: 20120213
  Receipt Date: 20120207
  Transmission Date: 20120608
  Serious: Yes (Other)
  Sender: FDA-Public Use
  Company Number: BE-ROCHE-1036526

PATIENT
  Sex: Female
  Weight: 62 kg

DRUGS (4)
  1. BETABLOCKERS [Concomitant]
  2. DEXAMETHASONE [Concomitant]
     Route: 048
     Dates: start: 20111122, end: 20111123
  3. AVASTIN [Suspect]
     Indication: BREAST CANCER METASTATIC
     Route: 042
     Dates: start: 20111123
  4. PACLITAXEL [Concomitant]
     Indication: CHEMOTHERAPY
     Route: 042
     Dates: start: 20111123

REACTIONS (2)
  - CARDIOVASCULAR DISORDER [None]
  - ATRIOVENTRICULAR BLOCK [None]
